FAERS Safety Report 5479429-9 (Version None)
Quarter: 2007Q4

REPORT INFORMATION
  Report Type: 
  Country: None (occurrence: None)
  Receive Date: 20071008
  Receipt Date: 20070926
  Transmission Date: 20080405
  Serious: Yes (Hospitalization, Other)
  Sender: FDA-Public Use
  Company Number: US-ELI_LILLY_AND_COMPANY-US200709004400

PATIENT
  Age: 91 Year
  Sex: Female

DRUGS (4)
  1. FORTEO [Suspect]
     Indication: OSTEOPOROSIS
     Dosage: 20 UG, DAILY (1/D)
     Dates: start: 20070824
  2. SYNTHROID [Concomitant]
     Dosage: 0.112 MG, UNK
  3. TYLENOL                                 /SCH/ [Concomitant]
  4. ACIPHEX [Concomitant]

REACTIONS (5)
  - COMPRESSION FRACTURE [None]
  - FALL [None]
  - HIP FRACTURE [None]
  - RIB FRACTURE [None]
  - URINARY TRACT INFECTION [None]
